FAERS Safety Report 6785640-7 (Version None)
Quarter: 2010Q2

REPORT INFORMATION
  Report Type: 
  Country: None (occurrence: None)
  Receive Date: 20100623
  Receipt Date: 20100616
  Transmission Date: 20101027
  Serious: Yes (Hospitalization, Other)
  Sender: FDA-Public Use
  Company Number: FR-JNJFOC-20100604995

PATIENT
  Age: 33 Year
  Sex: Female

DRUGS (3)
  1. TAVANIC [Suspect]
     Indication: PNEUMONIA
     Route: 065
  2. TAMIFLU [Suspect]
     Indication: PNEUMONIA
     Route: 065
  3. ROCEPHIN [Suspect]
     Indication: PNEUMONIA
     Route: 065

REACTIONS (3)
  - ACUTE RESPIRATORY DISTRESS SYNDROME [None]
  - CYTOLYTIC HEPATITIS [None]
  - LIPASE INCREASED [None]
